FAERS Safety Report 6895517-4 (Version None)
Quarter: 2010Q3

REPORT INFORMATION
  Report Type: 
  Country: None (occurrence: None)
  Receive Date: 20100802
  Receipt Date: 20100726
  Transmission Date: 20110219
  Serious: Yes (Death)
  Sender: FDA-Public Use
  Company Number: PHHY2010NL45996

PATIENT
  Sex: Male

DRUGS (2)
  1. ZOMETA [Suspect]
     Dosage: 4 MG, UNK
     Dates: start: 20100622
  2. ZOMETA [Suspect]
     Dosage: 4 MG, UNK
     Dates: start: 20100713

REACTIONS (4)
  - CHILLS [None]
  - DEATH [None]
  - INFLUENZA LIKE ILLNESS [None]
  - PYREXIA [None]
